FAERS Safety Report 5267523-7 (Version None)
Quarter: 2007Q1

REPORT INFORMATION
  Report Type: 
  Country: None (occurrence: None)
  Receive Date: 20061213
  Receipt Date: 20030925
  Transmission Date: 20070707
  Serious: No
  Sender: FDA-Public Use
  Company Number: 2003UW12182

PATIENT
  Sex: Female

DRUGS (1)
  1. NOLVADEX [Suspect]
     Indication: BREAST CANCER
     Dates: start: 20020701, end: 20030901

REACTIONS (3)
  - BREAST CANCER [None]
  - COUGH [None]
  - HOT FLUSH [None]
